FAERS Safety Report 10944964 (Version 1)
Quarter: 2015Q1

REPORT INFORMATION
  Report Type: Spontaneous
  Country: JP (occurrence: None)
  Receive Date: 20150318
  Receipt Date: 20150318
  Transmission Date: 20150721
  Serious: Yes (Other)
  Sender: FDA-Public Use
  Company Number: JP-20150036

PATIENT
  Age: 63 Year
  Sex: Male

DRUGS (2)
  1. IA-CALL (CISPLATIN) [Concomitant]
  2. LIPIODOL ULTRA FLUID [Suspect]
     Active Substance: ETHIODIZED OIL
     Indication: INFUSION
     Route: 013

REACTIONS (2)
  - Shock [None]
  - Product use issue [None]
